FAERS Safety Report 13120928 (Version 1)
Quarter: 2017Q1

REPORT INFORMATION
  Report Type: Spontaneous
  Country: US (occurrence: US)
  Receive Date: 20170113
  Receipt Date: 20170113
  Transmission Date: 20170428
  Serious: No
  Sender: FDA-Public Use
  Company Number: None

PATIENT
  Age: 41 Year
  Sex: Female

DRUGS (1)
  1. LETAIRIS [Suspect]
     Active Substance: AMBRISENTAN
     Indication: PULMONARY ARTERIAL HYPERTENSION
     Route: 048
     Dates: start: 20161118

REACTIONS (5)
  - Palpitations [None]
  - Dyspnoea [None]
  - Oedema peripheral [None]
  - Condition aggravated [None]
  - Chest pain [None]

NARRATIVE: CASE EVENT DATE: 20170106
